FAERS Safety Report 9482890 (Version 2)
Quarter: 2013Q3

REPORT INFORMATION
  Report Type: Spontaneous
  Country: US (occurrence: US)
  Receive Date: 20130828
  Receipt Date: 20130828
  Transmission Date: 20140515
  Serious: Yes (Death, Hospitalization)
  Sender: FDA-Public Use
  Company Number: US-AMGEN-KDL235897

PATIENT
  Age: 76 Year
  Sex: Male

DRUGS (18)
  1. ENBREL [Suspect]
     Indication: RHEUMATOID ARTHRITIS
     Dosage: UNK UNK, UNK
     Route: 058
     Dates: start: 20060815, end: 200701
  2. OMEPRAZOLE [Concomitant]
     Dosage: 20 MG, QD
  3. ATORVASTATIN CALCIUM [Concomitant]
     Dosage: 40 MG, QD
  4. CARVEDILOL [Concomitant]
     Dosage: UNK UNK, QD
  5. ISOSORBIDE DINITRATE [Concomitant]
     Dosage: 30 MG, QD
  6. LISINOPRIL [Concomitant]
     Dosage: 10 MG, QD
  7. ACETAMINOPHEN [Concomitant]
     Dosage: 650 MG, PRN
  8. ASCORBIC ACID [Concomitant]
     Dosage: 1000 MG, BID
  9. FISH OIL [Concomitant]
     Dosage: 2000 MG, 2 TIMES/WK
  10. ASPIRIN [Concomitant]
     Dosage: 81 MG, QD
  11. HYDROXYCHLOROQUINE SULFATE [Concomitant]
     Dosage: 200 MG, QD
  12. GARLIC [Concomitant]
     Dosage: 1000 MG, QD
  13. PREGABALIN [Concomitant]
     Dosage: 50 MG, BID
  14. MORPHINE [Concomitant]
     Dosage: 15 MG, PRN
  15. HYDROMORPHONE HYDROCHLORIDE [Concomitant]
     Dosage: UNK UNK, PRN
  16. DEXTROPROPOXYPHENE NAPSILATE W/ ACETOMINOPHEN [Concomitant]
     Dosage: UNK UNK, PRN
  17. TRAMADOL [Concomitant]
     Dosage: UNK UNK, PRN
  18. ZOLPIDEM TARTRATE [Concomitant]
     Dosage: UNK UNK, PRN

REACTIONS (27)
  - Death [Fatal]
  - Rheumatoid arthritis [Unknown]
  - Pneumonia [Unknown]
  - Respiratory tract infection [Unknown]
  - Hypophagia [Unknown]
  - Pyrexia [Unknown]
  - Groin pain [Unknown]
  - Leukocytosis [Unknown]
  - Dry mouth [Unknown]
  - Dysphagia [Unknown]
  - Fatigue [Unknown]
  - Dizziness [Unknown]
  - Insomnia [Unknown]
  - Sinus congestion [Unknown]
  - Anaemia [Unknown]
  - Thrombocytosis [Unknown]
  - Hyperglycaemia [Unknown]
  - Dehydration [Unknown]
  - Renal failure [Unknown]
  - Hypoalbuminaemia [Unknown]
  - Hypocalcaemia [Unknown]
  - Nephrolithiasis [Unknown]
  - Pulmonary granuloma [Unknown]
  - Polyarthritis [Unknown]
  - Plantar fasciitis [Unknown]
  - Osteoarthritis [Unknown]
  - Musculoskeletal pain [Unknown]
